FAERS Safety Report 4435117-9 (Version None)
Quarter: 2004Q3

REPORT INFORMATION
  Report Type: 
  Country: None (occurrence: None)
  Receive Date: 20040826
  Receipt Date: 20040826
  Transmission Date: 20050211
  Serious: Yes (Hospitalization)
  Sender: FDA-Public Use
  Company Number: None

PATIENT
  Age: 72 Year
  Sex: Male
  Weight: 117.2 kg

DRUGS (11)
  1. IRBESARTAN [Suspect]
     Indication: CARDIAC FAILURE CONGESTIVE
     Dosage: 75 MG ADILY ORAL
     Route: 048
     Dates: start: 20040608, end: 20040613
  2. IRBESARTAN [Suspect]
     Indication: HYPERTENSION
     Dosage: 75 MG ADILY ORAL
     Route: 048
     Dates: start: 20040608, end: 20040613
  3. LASIX [Suspect]
     Indication: CARDIAC FAILURE CONGESTIVE
     Dosage: 120 MG DAILY ORAL
     Route: 048
     Dates: start: 20040609, end: 20040613
  4. LASIX [Suspect]
     Indication: HYPERTENSION
     Dosage: 120 MG DAILY ORAL
     Route: 048
     Dates: start: 20040609, end: 20040613
  5. ALLOPURINOL [Concomitant]
  6. TEQUIN [Concomitant]
  7. AMIODARONE [Concomitant]
  8. ZOCOR [Concomitant]
  9. CITALOPRAM [Concomitant]
  10. OMEPRAZOLE [Concomitant]
  11. WARFARIN SODIUM [Concomitant]

REACTIONS (7)
  - ABDOMINAL DISTENSION [None]
  - ANOREXIA [None]
  - CARDIAC FAILURE CONGESTIVE [None]
  - CONDITION AGGRAVATED [None]
  - FEELING ABNORMAL [None]
  - NAUSEA [None]
  - RENAL FAILURE ACUTE [None]
